FAERS Safety Report 5085917-X (Version None)
Quarter: 2006Q3

REPORT INFORMATION
  Report Type: 
  Country: None (occurrence: None)
  Receive Date: 20060817
  Receipt Date: 20060808
  Transmission Date: 20061208
  Serious: Yes (Disabling, Other)
  Sender: FDA-Public Use
  Company Number: 2006074171

PATIENT
  Age: 58 Year
  Sex: Female
  Weight: 90 kg

DRUGS (12)
  1. LYRICA [Suspect]
     Indication: DIABETIC NEUROPATHY
     Dosage: SEE IMAGE, ORAL
     Route: 048
     Dates: start: 20060606, end: 20060615
  2. INSULIN [Concomitant]
  3. BUMETANIDE [Concomitant]
  4. EMCONCOR (BISOPROLOL) [Concomitant]
  5. ACCUPRIL [Concomitant]
  6. SIMVASTATIN [Concomitant]
  7. MIXTARD HUMAN 70/30 [Concomitant]
  8. GLUCOPHAGE [Concomitant]
  9. LEVOTHYROXINE SODIUM [Concomitant]
  10. ANAFRANIL [Concomitant]
  11. LORAZEPAM [Concomitant]
  12. SINTROM [Suspect]

REACTIONS (6)
  - CHOREA [None]
  - DIPLOPIA [None]
  - FALL [None]
  - MUSCULAR WEAKNESS [None]
  - STRABISMUS [None]
  - TREMOR [None]
